FAERS Safety Report 9921548 (Version 1)
Quarter: 2014Q1

REPORT INFORMATION
  Report Type: Spontaneous
  Country: US (occurrence: US)
  Receive Date: 20140225
  Receipt Date: 20140225
  Transmission Date: 20141002
  Serious: No
  Sender: FDA-Public Use
  Company Number: US-PFIZER INC-2014052257

PATIENT
  Age: 59 Year
  Sex: Male
  Weight: 111.11 kg

DRUGS (2)
  1. FLAGYL [Suspect]
     Indication: DIABETES MELLITUS
     Dosage: 1000 MG, 2X/DAY
     Dates: start: 201005
  2. FLAGYL [Suspect]
     Indication: COLITIS

REACTIONS (2)
  - Off label use [Unknown]
  - Neuropathy peripheral [Not Recovered/Not Resolved]
